FAERS Safety Report 24035807 (Version 1)
Quarter: 2024Q3

REPORT INFORMATION
  Report Type: Spontaneous
  Country: CN (occurrence: CN)
  Receive Date: 20240701
  Receipt Date: 20240701
  Transmission Date: 20241016
  Serious: Yes (Hospitalization)
  Sender: JOHNSON AND JOHNSON
  Company Number: CN-BAYER-2024A091761

PATIENT
  Age: 76 Year
  Sex: Male
  Weight: 69 kg

DRUGS (10)
  1. XARELTO [Suspect]
     Active Substance: RIVAROXABAN
     Indication: Atrial fibrillation
     Dosage: 15 MG, QD
     Route: 048
     Dates: start: 2023, end: 20240605
  2. XARELTO [Suspect]
     Active Substance: RIVAROXABAN
     Indication: Anticoagulant therapy
     Route: 048
  3. ASPIRIN [Suspect]
     Active Substance: ASPIRIN
     Indication: Anticoagulant therapy
     Dosage: 0.1 G, QD
     Route: 048
     Dates: start: 20240613, end: 20240617
  4. DALTEPARIN SODIUM [Suspect]
     Active Substance: DALTEPARIN SODIUM
     Indication: Anticoagulant therapy
     Dosage: 3000 IU, QD
     Route: 058
     Dates: start: 20240613, end: 20240616
  5. PLAVIX [Suspect]
     Active Substance: CLOPIDOGREL BISULFATE
     Indication: Atrial fibrillation
     Dosage: 75 MG, QD
     Route: 048
     Dates: start: 2023, end: 20240617
  6. PLAVIX [Suspect]
     Active Substance: CLOPIDOGREL BISULFATE
     Indication: Anticoagulant therapy
  7. METOPROLOL SUCCINATE [Concomitant]
     Active Substance: METOPROLOL SUCCINATE
     Indication: Atrial fibrillation
     Dosage: 47.5 MG, QD
     Route: 048
     Dates: start: 2023, end: 20240617
  8. KE DA LONG [Concomitant]
     Indication: Atrial fibrillation
     Dosage: 0.1 G, QD
     Route: 048
     Dates: start: 2023, end: 20240617
  9. ATORVASTATIN CALCIUM [Concomitant]
     Active Substance: ATORVASTATIN CALCIUM
     Dosage: 20 MG, QD
     Route: 048
     Dates: start: 2023, end: 20240617
  10. RABEPRAZOLE SODIUM [Concomitant]
     Active Substance: RABEPRAZOLE SODIUM
     Indication: Gastrointestinal disorder prophylaxis
     Dosage: 10 MG, QD
     Route: 048
     Dates: start: 2023, end: 20240617

REACTIONS (6)
  - Oedema peripheral [Recovered/Resolved]
  - Haemoptysis [Recovered/Resolved]
  - Haemoptysis [Recovered/Resolved]
  - Labelled drug-drug interaction issue [Unknown]
  - Contraindicated product administered [Unknown]
  - Contraindicated product prescribed [Unknown]

NARRATIVE: CASE EVENT DATE: 20240501
